FAERS Safety Report 24130409 (Version 1)
Quarter: 2024Q3

REPORT INFORMATION
  Report Type: Report from Study
  Country: US (occurrence: US)
  Receive Date: 20240724
  Receipt Date: 20240724
  Transmission Date: 20241016
  Serious: Yes (Other)
  Sender: pharmaAND
  Company Number: US-Pharmaand-2024000590

PATIENT
  Sex: Female

DRUGS (3)
  1. RUBRACA [Suspect]
     Active Substance: RUCAPARIB CAMSYLATE
     Indication: Ovarian cancer
     Dosage: 600 MG BID
     Route: 048
     Dates: start: 2021
  2. RUBRACA [Suspect]
     Active Substance: RUCAPARIB CAMSYLATE
     Dosage: 400 MG BID
     Route: 048
  3. LYNPARZA [Concomitant]
     Active Substance: OLAPARIB
     Indication: Ovarian cancer
     Dates: start: 2021, end: 202402

REACTIONS (7)
  - Bone neoplasm [Unknown]
  - Brain neoplasm [Unknown]
  - Neoplasm malignant [Unknown]
  - Arthralgia [Unknown]
  - Disturbance in attention [Unknown]
  - Fatigue [Unknown]
  - Asthenia [Unknown]
